FAERS Safety Report 8099388-2 (Version None)
Quarter: 2012Q1

REPORT INFORMATION
  Report Type: 
  Country: None (occurrence: None)
  Receive Date: 20120129
  Receipt Date: 20110914
  Transmission Date: 20120608
  Serious: No
  Sender: FDA-Public Use
  Company Number: US-ABBOTT-11P-163-0855034-00

PATIENT
  Age: 52 Year
  Sex: Male

DRUGS (7)
  1. ELAVIL [Concomitant]
     Indication: PRODUCT USED FOR UNKNOWN INDICATION
  2. LIPITOR [Concomitant]
     Indication: PRODUCT USED FOR UNKNOWN INDICATION
  3. ULTRA C [Concomitant]
     Indication: PRODUCT USED FOR UNKNOWN INDICATION
  4. HUMIRA [Suspect]
     Dosage: ONCE WEEKLY
     Dates: start: 20110401
  5. HUMIRA [Suspect]
     Indication: RHEUMATOID ARTHRITIS
     Dates: start: 20101207, end: 20110201
  6. ADVAIR DISKUS 100/50 [Concomitant]
     Indication: PRODUCT USED FOR UNKNOWN INDICATION
  7. ALBUTEROL [Concomitant]
     Indication: PRODUCT USED FOR UNKNOWN INDICATION

REACTIONS (7)
  - ILL-DEFINED DISORDER [None]
  - BONE PAIN [None]
  - ENDODONTIC PROCEDURE [None]
  - PAIN [None]
  - FINGER DEFORMITY [None]
  - INFECTION [None]
  - OEDEMA PERIPHERAL [None]
